FAERS Safety Report 18799656 (Version 1)
Quarter: 2021Q1

REPORT INFORMATION
  Report Type: Spontaneous
  Country: CA (occurrence: US)
  Receive Date: 20210128
  Receipt Date: 20210128
  Transmission Date: 20210419
  Serious: Yes (Hospitalization, Other)
  Sender: FDA-Public Use
  Company Number: CA-GLAXOSMITHKLINE-US2021GSK020010

PATIENT
  Sex: Male

DRUGS (1)
  1. AVANDIA [Suspect]
     Active Substance: ROSIGLITAZONE MALEATE
     Indication: DIABETES MELLITUS
     Dosage: UNK UNK, QD
     Route: 048
     Dates: start: 20030101, end: 20070601

REACTIONS (6)
  - Myocardial infarction [Unknown]
  - Myocardial ischaemia [Unknown]
  - Angina pectoris [Unknown]
  - Acute coronary syndrome [Unknown]
  - Cardiac disorder [Unknown]
  - Stent placement [Unknown]
